FAERS Safety Report 8530168-7 (Version None)
Quarter: 2012Q3

REPORT INFORMATION
  Report Type: 
  Country: None (occurrence: None)
  Receive Date: 20120723
  Receipt Date: 20120717
  Transmission Date: 20120928
  Serious: Yes (Death)
  Sender: FDA-Public Use
  Company Number: US-PFIZER INC-2012172355

PATIENT
  Sex: Male

DRUGS (1)
  1. VFEND [Suspect]
     Indication: FUNGAL INFECTION
     Dosage: 200 MG, 2X/DAY
     Dates: start: 20120622

REACTIONS (1)
  - NEOPLASM MALIGNANT [None]
